FAERS Safety Report 7850954-6 (Version None)
Quarter: 2011Q4

REPORT INFORMATION
  Report Type: 
  Country: None (occurrence: None)
  Receive Date: 20111021
  Receipt Date: 20111011
  Transmission Date: 20120403
  Serious: Yes (Hospitalization, Other)
  Sender: FDA-Public Use
  Company Number: 2011P1007664

PATIENT
  Sex: Female

DRUGS (2)
  1. ALBENDAZOLE (NO PREF. NAME) [Suspect]
     Indication: NERVOUS SYSTEM DISORDER
     Dosage: 400 MG; TID; PO
     Route: 048
     Dates: start: 20110620, end: 20110820
  2. ALBENDAZOLE (NO PREF. NAME) [Suspect]
     Indication: INFECTION PARASITIC
     Dosage: 400 MG; TID; PO
     Route: 048
     Dates: start: 20110620, end: 20110820

REACTIONS (4)
  - NAUSEA [None]
  - FEELING ABNORMAL [None]
  - OVERDOSE [None]
  - HEADACHE [None]
